FAERS Safety Report 7786858-7 (Version None)
Quarter: 2011Q3

REPORT INFORMATION
  Report Type: 
  Country: None (occurrence: None)
  Receive Date: 20110929
  Receipt Date: 20090302
  Transmission Date: 20111222
  Serious: Yes (Hospitalization)
  Sender: FDA-Public Use
  Company Number: DE-MERCK-0903DEU00010

PATIENT
  Age: 67 Year
  Sex: Male

DRUGS (4)
  1. TRUSOPT [Suspect]
     Indication: GLAUCOMA
     Route: 047
     Dates: start: 20070101, end: 20100101
  2. ATENOLOL [Concomitant]
     Route: 048
     Dates: start: 19890101, end: 20090227
  3. LORAZEPAM [Concomitant]
     Route: 048
     Dates: start: 19890101
  4. TRUSOPT [Suspect]
     Route: 047
     Dates: start: 20100101

REACTIONS (3)
  - PALPITATIONS [None]
  - BLEPHARITIS [None]
  - HYPERTENSION [None]
